FAERS Safety Report 6360601-0 (Version None)
Quarter: 2009Q3

REPORT INFORMATION
  Report Type: 
  Country: None (occurrence: None)
  Receive Date: 20090915
  Receipt Date: 20090903
  Transmission Date: 20100115
  Serious: Yes (Hospitalization)
  Sender: FDA-Public Use
  Company Number: 234904K09USA

PATIENT

DRUGS (5)
  1. REBIF [Suspect]
     Indication: MULTIPLE SCLEROSIS
     Dosage: 44 MCG, 3 IN 1 WEEKS, SUBCUTANEOUS
     Route: 058
     Dates: start: 20040917
  2. SYNTHROID [Concomitant]
  3. CYMBALTA [Concomitant]
  4. MORPHINE [Concomitant]
  5. TOPROL-XL [Concomitant]

REACTIONS (4)
  - DYSPNOEA [None]
  - NEPHROLITHIASIS [None]
  - OEDEMA PERIPHERAL [None]
  - URETERIC OBSTRUCTION [None]
